FAERS Safety Report 15298663 (Version 1)
Quarter: 2018Q4

REPORT INFORMATION
  Report Type: Spontaneous
  Country: JP (occurrence: JP)
  Receive Date: 20180820
  Receipt Date: 20180820
  Transmission Date: 20190204
  Serious: Yes (Other)
  Sender: FDA-Public Use
  Company Number: JP-NAPPMUNDI-GBR-2017-0050307

PATIENT
  Sex: Male

DRUGS (2)
  1. OXIFAST [Suspect]
     Active Substance: OXYCODONE
     Indication: CANCER PAIN
     Dosage: 0.9 DF, Q1H
     Route: 058
  2. OXINORM (OXYCODONE HYDROCHLORIDE) [Suspect]
     Active Substance: OXYCODONE HYDROCHLORIDE
     Indication: CANCER PAIN
     Dosage: UNK, Q2H
     Route: 065

REACTIONS (3)
  - Inadequate analgesia [Recovering/Resolving]
  - Dementia [Unknown]
  - Delirium [Recovering/Resolving]
